FAERS Safety Report 6594042-8 (Version None)
Quarter: 2010Q1

REPORT INFORMATION
  Report Type: 
  Country: None (occurrence: None)
  Receive Date: 20100222
  Receipt Date: 20100211
  Transmission Date: 20100710
  Serious: Yes (Hospitalization)
  Sender: FDA-Public Use
  Company Number: US-BAYER-201011553BCC

PATIENT
  Age: 67 Year
  Sex: Female
  Weight: 73 kg

DRUGS (6)
  1. ASPIRIN [Suspect]
     Indication: ISCHAEMIC HEART DISEASE PROPHYLAXIS
     Route: 048
     Dates: start: 20091101, end: 20091201
  2. LIPITOR [Concomitant]
     Route: 065
  3. CELEBREX [Concomitant]
     Route: 065
  4. LORAZEPAM [Concomitant]
     Route: 065
  5. SYNTHROID [Concomitant]
     Dosage: A HALF OF AN 88MG A DAY
     Route: 065
  6. TRIAMTERENE [Concomitant]
     Route: 065

REACTIONS (1)
  - VAGINAL HAEMORRHAGE [None]
